FAERS Safety Report 9122865 (Version 1)
Quarter: 2013Q1

REPORT INFORMATION
  Report Type: Spontaneous
  Country: US (occurrence: US)
  Receive Date: 20130115
  Receipt Date: 20130115
  Transmission Date: 20140127
  Serious: Yes (Other)
  Sender: FDA-Public Use
  Company Number: US-009507513-1012USA00461

PATIENT
  Age: 6 Year
  Sex: Male
  Weight: 26.76 kg

DRUGS (1)
  1. SINGULAIR [Suspect]
     Indication: ASTHMA
     Dosage: UNK
     Route: 048
     Dates: start: 20100120, end: 20100203

REACTIONS (3)
  - Abnormal behaviour [Unknown]
  - Rhinorrhoea [Unknown]
  - Tic [Recovering/Resolving]
